FAERS Safety Report 8992762 (Version 1)
Quarter: 2013Q1

REPORT INFORMATION
  Report Type: Spontaneous
  Country: JP (occurrence: JP)
  Receive Date: 20130102
  Receipt Date: 20130102
  Transmission Date: 20140127
  Serious: Yes (Other)
  Sender: FDA-Public Use
  Company Number: JP-AMGEN-JPNSP2012078470

PATIENT
  Age: 55 Year
  Sex: Female
  Weight: 66 kg

DRUGS (19)
  1. RANMARK [Suspect]
     Indication: METASTASES TO BONE
     Dosage: 120 MG, QMO
     Route: 058
     Dates: start: 20121005, end: 20121114
  2. CARBOPLATIN [Suspect]
     Dosage: UNKNOWN
     Route: 065
  3. PACLITAXEL [Suspect]
     Dosage: UNKNOWN
     Route: 065
  4. BEVACIZUMAB [Suspect]
     Dosage: UNK
     Route: 065
  5. LYRICA [Concomitant]
     Dosage: UNKNOWN
     Route: 065
  6. VOLTAREN [Concomitant]
     Dosage: UNKNOWN
     Route: 065
  7. ALFAROL [Concomitant]
     Indication: PROPHYLAXIS
     Dosage: 0.25 MUG, QD
     Route: 048
     Dates: start: 20121005, end: 20121124
  8. PREDONINE [Concomitant]
     Indication: POSTOPERATIVE CARE
     Dosage: 10 MG, QD
     Route: 048
     Dates: start: 20121115, end: 20121124
  9. TANKARU [Concomitant]
     Indication: PROPHYLAXIS
     Dosage: 500 MG, QD
     Route: 048
     Dates: start: 20121005, end: 20121124
  10. OXYCONTIN [Concomitant]
     Indication: CANCER PAIN
     Dosage: 40 MG, BID
     Route: 048
     Dates: start: 20121115, end: 20121203
  11. OXINORM [Concomitant]
     Indication: CANCER PAIN
     Dosage: 10 MG, BID
     Route: 048
     Dates: start: 20121115, end: 20121203
  12. NOVAMIN [Concomitant]
     Indication: PROPHYLAXIS
     Dosage: 5 MG, TID
     Route: 048
     Dates: start: 20121005, end: 20121124
  13. MAGMITT [Concomitant]
     Indication: PROPHYLAXIS
     Dosage: 660 MG, TID
     Route: 048
     Dates: start: 20121005, end: 20121124
  14. LAXOBERON [Concomitant]
     Indication: PROPHYLAXIS
     Dosage: 15 GTT, QD
     Route: 048
     Dates: start: 20121120, end: 20121124
  15. PURSENID [Concomitant]
     Indication: PROPHYLAXIS
     Dosage: 36 MG, QD
     Route: 048
     Dates: start: 20121123, end: 20121124
  16. MAXIPIME [Concomitant]
     Indication: FEBRILE NEUTROPENIA
     Dosage: 1 G, QID
     Route: 041
     Dates: start: 20121121, end: 20121128
  17. NEUTROGIN [Concomitant]
     Indication: FEBRILE NEUTROPENIA
     Dosage: 100 MUG, QD
     Route: 058
     Dates: start: 20121122, end: 20121127
  18. PRIMPERAN [Concomitant]
     Indication: FEBRILE NEUTROPENIA
     Dosage: 10 MG, QD
     Route: 041
     Dates: start: 20121121, end: 20121127
  19. VEEN-F [Concomitant]
     Indication: FEBRILE NEUTROPENIA
     Dosage: 500 ML, QD
     Route: 041
     Dates: start: 20121121, end: 20121127

REACTIONS (2)
  - Hypocalcaemia [Recovered/Resolved]
  - Enterocolitis infectious [Recovered/Resolved]
